FAERS Safety Report 18678793 (Version 5)
Quarter: 2024Q1

REPORT INFORMATION
  Report Type: Spontaneous
  Country: JP (occurrence: JP)
  Receive Date: 20201230
  Receipt Date: 20240125
  Transmission Date: 20240409
  Serious: Yes (Hospitalization, Other)
  Sender: FDA-Public Use
  Company Number: JP-KYOWAKIRIN-2020AKK021291

PATIENT
  Age: 57 Year
  Sex: Female

DRUGS (69)
  1. PEGFILGRASTIM [Suspect]
     Active Substance: PEGFILGRASTIM
     Indication: Colony stimulating factor therapy
     Dosage: 3.6 MG, QD
     Route: 058
     Dates: start: 20200411, end: 20200411
  2. PEGFILGRASTIM [Suspect]
     Active Substance: PEGFILGRASTIM
     Dosage: 3.6 MG, QD
     Route: 058
     Dates: start: 20200509, end: 20200509
  3. PEGFILGRASTIM [Suspect]
     Active Substance: PEGFILGRASTIM
     Dosage: 3.6 MG, QD
     Route: 058
     Dates: start: 20200530, end: 20200530
  4. PEGFILGRASTIM [Suspect]
     Active Substance: PEGFILGRASTIM
     Dosage: 3.6 MG, QD
     Route: 058
     Dates: start: 20201112, end: 20201112
  5. DOXORUBICIN HYDROCHLORIDE [Suspect]
     Active Substance: DOXORUBICIN HYDROCHLORIDE
     Indication: Invasive ductal breast carcinoma
     Dosage: 124 MG
     Route: 041
     Dates: start: 20200409, end: 20200409
  6. DOXORUBICIN HYDROCHLORIDE [Suspect]
     Active Substance: DOXORUBICIN HYDROCHLORIDE
     Dosage: 124 MG
     Route: 041
     Dates: start: 20200507, end: 20200507
  7. DOXORUBICIN HYDROCHLORIDE [Suspect]
     Active Substance: DOXORUBICIN HYDROCHLORIDE
     Dosage: 124 MG
     Route: 041
     Dates: start: 20200528, end: 20200528
  8. DOXORUBICIN HYDROCHLORIDE [Suspect]
     Active Substance: DOXORUBICIN HYDROCHLORIDE
     Dosage: 124 MG
     Route: 041
     Dates: start: 20201110, end: 20201110
  9. CYCLOPHOSPHAMIDE [Suspect]
     Active Substance: CYCLOPHOSPHAMIDE
     Indication: Invasive ductal breast carcinoma
     Dosage: 1240 MILLIGRAM
     Route: 041
     Dates: start: 20200409, end: 20200409
  10. CYCLOPHOSPHAMIDE [Suspect]
     Active Substance: CYCLOPHOSPHAMIDE
     Dosage: 1240 MG
     Route: 041
     Dates: start: 20200507, end: 20200507
  11. CYCLOPHOSPHAMIDE [Suspect]
     Active Substance: CYCLOPHOSPHAMIDE
     Dosage: 1240 MG
     Route: 041
     Dates: start: 20200528, end: 20200528
  12. CYCLOPHOSPHAMIDE [Suspect]
     Active Substance: CYCLOPHOSPHAMIDE
     Dosage: 1240 MG
     Route: 041
     Dates: start: 20201110, end: 20201110
  13. PACLITAXEL [Suspect]
     Active Substance: PACLITAXEL
     Indication: Invasive ductal breast carcinoma
     Dosage: 155 MG/BODY
     Route: 041
     Dates: start: 20200804, end: 20201029
  14. CALONAL [Suspect]
     Active Substance: ACETAMINOPHEN
     Indication: Pain prophylaxis
     Dosage: 400 MG, TID
     Route: 048
     Dates: start: 20200430
  15. ACETAMINOPHEN [Suspect]
     Active Substance: ACETAMINOPHEN
     Indication: Analgesic therapy
     Dosage: 1000 MG
     Route: 042
     Dates: start: 20201124, end: 20201130
  16. LOXOPROFEN [Suspect]
     Active Substance: LOXOPROFEN
     Indication: Analgesic therapy
     Dosage: 180 MG, TID
     Route: 048
     Dates: start: 20200722
  17. NAPROXEN SODIUM [Suspect]
     Active Substance: NAPROXEN\NAPROXEN SODIUM
     Indication: Analgesic therapy
     Dosage: 100 MG, TID
     Route: 048
     Dates: start: 20201130
  18. DEXAMETHASONE SODIUM PHOSPHATE [Suspect]
     Active Substance: DEXAMETHASONE PHOSPHATE\DEXAMETHASONE SODIUM PHOSPHATE
     Indication: Prophylaxis of nausea and vomiting
     Dosage: 3 ML
     Route: 041
     Dates: start: 20200409, end: 20201111
  19. DECADRON [Suspect]
     Active Substance: DEXAMETHASONE
     Indication: Prophylaxis of nausea and vomiting
     Dosage: 8 MG
     Route: 048
     Dates: start: 20200409, end: 20201110
  20. DEXAMETHASONE [Suspect]
     Active Substance: DEXAMETHASONE
     Indication: Stomatitis
     Dosage: UNK
     Route: 061
     Dates: start: 20200514, end: 20200514
  21. ALOXI [Concomitant]
     Active Substance: PALONOSETRON HYDROCHLORIDE
     Indication: Prophylaxis of nausea and vomiting
     Dosage: 5 ML
     Route: 042
     Dates: start: 20200409, end: 20201110
  22. PIPERACILLIN [Concomitant]
     Active Substance: PIPERACILLIN
     Indication: Antibiotic prophylaxis
     Dosage: 2 G
     Route: 042
     Dates: start: 20200616, end: 20201202
  23. DEXTROSE\POTASSIUM CHLORIDE\SODIUM CHLORIDE\SODIUM LACTATE [Concomitant]
     Active Substance: DEXTROSE\POTASSIUM CHLORIDE\SODIUM CHLORIDE\SODIUM LACTATE
     Indication: Electrolyte substitution therapy
     Dosage: 500 ML
     Route: 041
     Dates: start: 20200616, end: 20200619
  24. CEFAZOLIN SODIUM [Concomitant]
     Active Substance: CEFAZOLIN SODIUM
     Indication: Antibiotic prophylaxis
     Dosage: 1 G
     Route: 042
     Dates: start: 20200626, end: 20200712
  25. GASTER [Concomitant]
     Active Substance: FAMOTIDINE
     Indication: Allergy prophylaxis
     Dosage: 20 MILLIGRAM
     Route: 041
     Dates: start: 20200804, end: 20201029
  26. Fesin [Concomitant]
     Indication: Marrow hyperplasia
     Dosage: 2 ML
     Route: 041
     Dates: start: 20201203, end: 20201215
  27. CYANOCOBALAMIN\PYRIDOXINE HYDROCHLORIDE\THIAMINE [Concomitant]
     Active Substance: CYANOCOBALAMIN\PYRIDOXINE HYDROCHLORIDE\THIAMINE
     Indication: Vitamin supplementation
     Dosage: UNK
     Route: 041
     Dates: start: 20201204, end: 20201215
  28. APREPITANT [Concomitant]
     Active Substance: APREPITANT
     Indication: Prophylaxis of nausea and vomiting
     Dosage: 80 MG
     Route: 048
     Dates: start: 20200409, end: 20201110
  29. ASENAPINE MALEATE [Concomitant]
     Active Substance: ASENAPINE MALEATE
     Indication: Psychotic disorder
     Dosage: 5 MG
     Route: 060
     Dates: start: 20200409, end: 20201110
  30. SOLANAX [Concomitant]
     Active Substance: ALPRAZOLAM
     Indication: Prophylaxis of nausea and vomiting
     Dosage: 0.4 MG
     Route: 048
     Dates: start: 20200409, end: 20201110
  31. PRIMPERAN [Concomitant]
     Active Substance: METOCLOPRAMIDE HYDROCHLORIDE
     Indication: Prophylaxis of nausea and vomiting
     Dosage: 5 MG
     Route: 048
     Dates: start: 20200409, end: 20200507
  32. MAGNESIUM OXIDE [Concomitant]
     Active Substance: MAGNESIUM OXIDE
     Indication: Dyspepsia
     Dosage: 660 MG, TID
     Route: 048
     Dates: start: 20200409
  33. LEVOFLOXACIN [Concomitant]
     Active Substance: LEVOFLOXACIN
     Indication: Antibiotic prophylaxis
     Dosage: 500 MG, QD
     Route: 048
     Dates: start: 20200409
  34. AMOXICILLIN [Concomitant]
     Active Substance: AMOXICILLIN
     Indication: Antibiotic prophylaxis
     Dosage: 250 MG, TID
     Route: 048
     Dates: start: 20200403
  35. GENTAMICIN SULFATE [Concomitant]
     Active Substance: GENTAMICIN SULFATE
     Indication: Antibiotic prophylaxis
     Dosage: SEVERAL TIMES
     Route: 061
     Dates: start: 20200423
  36. DIETARY SUPPLEMENT\PROBIOTICS [Concomitant]
     Active Substance: DIETARY SUPPLEMENT\PROBIOTICS NOS
     Indication: Dysbiosis
     Dosage: 1 G, TID
     Route: 048
     Dates: start: 20200423
  37. LAGNOS NF [Concomitant]
     Indication: Constipation prophylaxis
     Dosage: 12 G, QD
     Route: 048
     Dates: start: 20200512, end: 20210222
  38. SODIUM GUALENATE MONOHYDRATE [Concomitant]
     Active Substance: SODIUM GUALENATE MONOHYDRATE
     Indication: Inflammation
     Dosage: UNK
     Route: 049
     Dates: start: 20200514
  39. LANSOPRAZOLE [Concomitant]
     Active Substance: LANSOPRAZOLE
     Indication: Peptic ulcer
     Dosage: 15 MG, QD
     Route: 048
     Dates: start: 20200514, end: 20200526
  40. FEBUXOSTAT [Concomitant]
     Active Substance: FEBUXOSTAT
     Indication: Hyperuricaemia
     Dosage: 10 MG, QD
     Route: 048
     Dates: start: 20200526, end: 20210222
  41. FEBUXOSTAT [Concomitant]
     Active Substance: FEBUXOSTAT
     Dosage: 10 MILLIGRAM, QD
     Route: 048
     Dates: start: 20200526
  42. FEBUXOSTAT [Concomitant]
     Active Substance: FEBUXOSTAT
     Dosage: UNK
  43. TRAMADOL [Concomitant]
     Active Substance: TRAMADOL\TRAMADOL HYDROCHLORIDE
     Indication: Analgesic therapy
     Dosage: 100 MG, QD
     Route: 048
     Dates: start: 20200614
  44. SODIUM FERROUS CITRATE [Concomitant]
     Active Substance: SODIUM FERROUS CITRATE
     Indication: Marrow hyperplasia
     Dosage: 50 MG, QD
     Route: 048
     Dates: start: 20200625
  45. BELSOMRA [Concomitant]
     Active Substance: SUVOREXANT
     Indication: Insomnia
     Dosage: 15 MG, QD
     Route: 048
     Dates: start: 20200629, end: 20200702
  46. ROZEREM [Concomitant]
     Active Substance: RAMELTEON
     Indication: Insomnia
     Dosage: 8 MG, QD
     Route: 048
     Dates: start: 20200629, end: 20200702
  47. REBAMIPIDE [Concomitant]
     Active Substance: REBAMIPIDE
     Indication: Peptic ulcer
     Dosage: 300 MG, TID
     Route: 048
     Dates: start: 20200722, end: 20210129
  48. MIROGABALIN BESYLATE [Concomitant]
     Active Substance: MIROGABALIN BESYLATE
     Indication: Neuralgia
     Dosage: 2.5 MG, QD
     Route: 048
     Dates: start: 20200813, end: 20201124
  49. DIPHENHYDRAMINE [Concomitant]
     Active Substance: DIPHENHYDRAMINE
     Indication: Allergy prophylaxis
     Dosage: 50 MG, QD
     Route: 048
     Dates: start: 20200825, end: 20201029
  50. PENTOSAN POLYSULFATE SODIUM [Concomitant]
     Active Substance: PENTOSAN POLYSULFATE SODIUM
     Indication: Vascular insufficiency
     Dosage: UNK
     Route: 061
     Dates: start: 20201008
  51. PENTOSAN POLYSULFATE SODIUM [Concomitant]
     Active Substance: PENTOSAN POLYSULFATE SODIUM
     Indication: Dry skin prophylaxis
     Dosage: UNK
     Route: 065
  52. Myser [Concomitant]
     Indication: Eczema
     Dosage: UNK
     Route: 061
     Dates: start: 20201008
  53. SAHNE [Concomitant]
     Indication: Eczema
     Dosage: UNK
     Route: 061
     Dates: start: 20201008
  54. URSO [Concomitant]
     Active Substance: URSODIOL
     Indication: Hepatic function abnormal
     Dosage: 100 MG, TID
     Route: 048
     Dates: start: 20201204, end: 20210112
  55. Glycyron [Concomitant]
     Indication: Hepatic function abnormal
     Dosage: UNK UNK, TID
     Route: 048
     Dates: start: 20201204, end: 20210112
  56. CYANOCOBALAMIN\PYRIDOXINE HYDROCHLORIDE\THIAMINE [Concomitant]
     Active Substance: CYANOCOBALAMIN\PYRIDOXINE HYDROCHLORIDE\THIAMINE
     Indication: Vitamin supplementation
     Dosage: UNK UNK, TID
     Route: 048
     Dates: start: 20201215
  57. LETROZOLE [Concomitant]
     Active Substance: LETROZOLE
     Indication: Invasive ductal breast carcinoma
     Dosage: 2.5 MG, QD
     Route: 048
     Dates: start: 20201222
  58. ALPRAZOLAM [Concomitant]
     Active Substance: ALPRAZOLAM
     Indication: Prophylaxis of nausea and vomiting
     Dosage: 0.4 MILLIGRAM PRN, AT THE TIME OF QUEASY
     Route: 048
  59. ICOSAPENT ETHYL [Concomitant]
     Active Substance: ICOSAPENT ETHYL
     Indication: Hyperlipidaemia
     Dosage: 1200 MG, BID
     Route: 048
  60. NEXIUM [Concomitant]
     Active Substance: ESOMEPRAZOLE MAGNESIUM
     Indication: Peptic ulcer
     Dosage: 20 MG, QD
     Route: 048
  61. ASPIRIN [Concomitant]
     Active Substance: ASPIRIN
     Indication: Anticoagulant therapy
     Dosage: 100 MG, QD
     Route: 048
  62. METOCLOPRAMIDE [Concomitant]
     Active Substance: METOCLOPRAMIDE
     Indication: Prophylaxis of nausea and vomiting
     Dosage: 5 MG, PRN, AT THE TIME OF QUEASY
     Route: 048
  63. CANDESARTAN [Concomitant]
     Active Substance: CANDESARTAN
     Indication: Blood pressure increased
     Dosage: 8 MG, QD
     Route: 048
  64. JANUVIA [Concomitant]
     Active Substance: SITAGLIPTIN PHOSPHATE
     Indication: Diabetes mellitus
     Dosage: 50 MG, QD
     Route: 048
  65. ZETIA [Concomitant]
     Active Substance: EZETIMIBE
     Indication: Hyperlipidaemia
     Dosage: 10 MG, QD
     Route: 048
  66. BIO-THREE [Concomitant]
     Active Substance: HERBALS
     Indication: Gastrointestinal disorder
     Dosage: UNK, QID
     Route: 048
  67. OLMESARTAN MEDOXOMIL [Concomitant]
     Active Substance: OLMESARTAN MEDOXOMIL
     Indication: Blood pressure increased
     Dosage: 10 MG, QD
     Route: 048
  68. NIFEDIPINE [Concomitant]
     Active Substance: NIFEDIPINE
     Indication: Blood pressure increased
     Dosage: 20 MG, QD
     Route: 048
  69. ROSUVASTATIN CALCIUM [Concomitant]
     Active Substance: ROSUVASTATIN CALCIUM
     Indication: Hyperlipidaemia
     Dosage: 2.5 MG, QD
     Route: 048

REACTIONS (15)
  - Infective aortitis [Recovered/Resolved]
  - Sepsis [Recovered/Resolved]
  - Postoperative wound infection [Recovered/Resolved]
  - Aortitis [Recovered/Resolved]
  - Gastric ulcer [Recovered/Resolved]
  - Peptic ulcer [Recovered/Resolved]
  - Neuropathy peripheral [Recovered/Resolved]
  - Iron deficiency anaemia [Recovered/Resolved]
  - Axillary pain [Recovered/Resolved]
  - Hypersensitivity [Recovered/Resolved]
  - Constipation [Recovered/Resolved]
  - Stomatitis [Recovered/Resolved]
  - Insomnia [Recovered/Resolved]
  - Blood alkaline phosphatase increased [Recovered/Resolved]
  - Alanine aminotransferase increased [Recovered/Resolved]

NARRATIVE: CASE EVENT DATE: 20200423
